FAERS Safety Report 4620918-4 (Version None)
Quarter: 2005Q1

REPORT INFORMATION
  Report Type: 
  Country: None (occurrence: None)
  Receive Date: 20050325
  Receipt Date: 20050307
  Transmission Date: 20050727
  Serious: No
  Sender: FDA-Public Use
  Company Number: A01200501376

PATIENT
  Age: 50 Year
  Sex: 0

DRUGS (5)
  1. STILNOX - (ZOLPIDEM) [Suspect]
     Indication: SLEEP DISORDER
     Dosage: 10 MG, ORAL
     Route: 048
     Dates: start: 20040106, end: 20040107
  2. KEFLEX [Concomitant]
  3. CECLOR CD [Concomitant]
  4. VENTOLIN NEBS (SALBUTAMOL SULFATE) [Concomitant]
  5. MODURETIC 5-50 [Concomitant]

REACTIONS (6)
  - CIRCULATORY COLLAPSE [None]
  - EYE SWELLING [None]
  - NAUSEA [None]
  - TREMOR [None]
  - VISUAL DISTURBANCE [None]
  - VOMITING [None]
